FAERS Safety Report 5987481-7 (Version None)
Quarter: 2008Q4

REPORT INFORMATION
  Report Type: 
  Country: None (occurrence: None)
  Receive Date: 20081209
  Receipt Date: 20081202
  Transmission Date: 20090506
  Serious: Yes (Other)
  Sender: FDA-Public Use
  Company Number: CA-ASTRAZENECA-2008UW26665

PATIENT
  Age: 27559 Day
  Sex: Male
  Weight: 109 kg

DRUGS (15)
  1. ATACAND [Suspect]
     Route: 048
     Dates: start: 20081106, end: 20081126
  2. SYNTHROID [Concomitant]
     Indication: HYPOTHYROIDISM
     Route: 048
  3. RIVASA [Concomitant]
     Indication: ATRIAL FIBRILLATION
     Route: 048
  4. LYRICA [Concomitant]
     Indication: NEUROPATHY PERIPHERAL
     Route: 048
  5. AMIODARONE HCL [Concomitant]
     Indication: ARRHYTHMIA
     Route: 048
  6. ALDACTONE [Concomitant]
     Route: 048
  7. VITALUX [Concomitant]
  8. QUININE [Concomitant]
     Indication: MUSCLE SPASMS
  9. ALLOPURINOL [Concomitant]
     Indication: GOUT
  10. PANTOPRAZOLE SODIUM [Concomitant]
     Indication: GASTROINTESTINAL DISORDER
  11. DIGOXIN [Concomitant]
     Indication: CARDIAC FAILURE
  12. LIPITOR [Concomitant]
     Indication: DYSLIPIDAEMIA
  13. LASIX [Concomitant]
     Indication: CARDIAC FAILURE
  14. ALTACE [Concomitant]
     Indication: CARDIAC FAILURE
  15. CIPRALEX [Concomitant]
     Indication: DEPRESSION

REACTIONS (1)
  - CARDIAC FAILURE [None]
